FAERS Safety Report 18845936 (Version 1)
Quarter: 2021Q1

REPORT INFORMATION
  Report Type: Spontaneous
  Country: US (occurrence: US)
  Receive Date: 20210203
  Receipt Date: 20210203
  Transmission Date: 20210419
  Serious: No
  Sender: FDA-Public Use
  Company Number: US-009507513-2101USA012645

PATIENT
  Age: 29 Year
  Sex: Female

DRUGS (2)
  1. ESTROGEN NOS [Concomitant]
     Active Substance: ESTROGENS
     Dosage: UNK
  2. PROSCAR [Suspect]
     Active Substance: FINASTERIDE
     Indication: TRANSGENDER HORMONAL THERAPY
     Dosage: UNK
     Route: 048

REACTIONS (1)
  - Product use in unapproved indication [Unknown]
